FAERS Safety Report 8358866-9 (Version None)
Quarter: 2012Q2

REPORT INFORMATION
  Report Type: 
  Country: None (occurrence: None)
  Receive Date: 20120515
  Receipt Date: 20120504
  Transmission Date: 20120825
  Serious: Yes (Hospitalization)
  Sender: FDA-Public Use
  Company Number: US-BIOGENIDEC-2012BI016174

PATIENT
  Age: 42 Year
  Sex: Male

DRUGS (3)
  1. LAMICTAL [Concomitant]
     Indication: EPILEPSY
     Dates: end: 20110601
  2. TYSABRI [Suspect]
     Indication: MULTIPLE SCLEROSIS
     Route: 042
     Dates: start: 20100714
  3. LAMICTAL XR [Concomitant]
     Indication: EPILEPSY
     Dates: start: 20110601

REACTIONS (1)
  - GRAND MAL CONVULSION [None]
